FAERS Safety Report 6573525-0 (Version None)
Quarter: 2010Q1

REPORT INFORMATION
  Report Type: 
  Country: None (occurrence: None)
  Receive Date: 20100208
  Receipt Date: 20100201
  Transmission Date: 20100710
  Serious: Yes (Hospitalization)
  Sender: FDA-Public Use
  Company Number: BR-SANOFI-AVENTIS-2010SA006401

PATIENT
  Age: 60 Year
  Sex: Female
  Weight: 80 kg

DRUGS (10)
  1. LANTUS [Suspect]
     Indication: TYPE 2 DIABETES MELLITUS
     Route: 058
  2. REGULAR INSULIN [Concomitant]
     Indication: TYPE 2 DIABETES MELLITUS
     Dosage: ACCORDING TO GLYCEMIA
     Route: 058
  3. LOSARTAN POTASSIUM [Concomitant]
     Route: 048
  4. ATENOLOL [Concomitant]
     Route: 048
  5. AAS [Concomitant]
     Indication: ANTICOAGULANT THERAPY
     Route: 048
  6. GABAPENTIN [Concomitant]
     Route: 048
  7. GABAPENTIN [Concomitant]
     Route: 048
  8. PANTOPRAZOLE [Concomitant]
     Route: 048
  9. DOMPERIDONE [Concomitant]
     Route: 048
  10. ATORVASTATIN CALCIUM [Concomitant]
     Route: 048

REACTIONS (5)
  - DENGUE FEVER [None]
  - HYPERGLYCAEMIA [None]
  - INJECTION SITE PAIN [None]
  - PNEUMONIA [None]
  - SKIN INDURATION [None]
